FAERS Safety Report 9174277 (Version 1)
Quarter: 2013Q1

REPORT INFORMATION
  Report Type: Spontaneous
  Country: FR (occurrence: None)
  Receive Date: 20130318
  Receipt Date: 20130318
  Transmission Date: 20140127
  Serious: Yes (Other)
  Sender: FDA-Public Use
  Company Number: 1631037

PATIENT
  Age: 71 Year
  Sex: Female

DRUGS (9)
  1. CARBOPLATIN [Suspect]
     Indication: OVARIAN CANCER
     Route: 042
     Dates: start: 20120910, end: 20121023
  2. AVASTIN [Concomitant]
  3. GEMCITABINE [Concomitant]
  4. ZOPHREN [Concomitant]
  5. METHYLPREDNISOLONE [Concomitant]
  6. EMEND [Concomitant]
  7. COTAREG [Concomitant]
  8. PROZAC [Concomitant]
  9. ALPRAZOLAM [Suspect]

REACTIONS (5)
  - Throat irritation [None]
  - Rash [None]
  - Malaise [None]
  - Hypotension [None]
  - Drug hypersensitivity [None]
